FAERS Safety Report 13968315 (Version 1)
Quarter: 2017Q3

REPORT INFORMATION
  Report Type: Spontaneous
  Country: US (occurrence: US)
  Receive Date: 20170914
  Receipt Date: 20170914
  Transmission Date: 20171128
  Serious: No
  Sender: FDA-Public Use
  Company Number: US-PERRIGO-17US001740

PATIENT
  Age: 34 Year
  Sex: Female
  Weight: 72.11 kg

DRUGS (1)
  1. MINOXIDIL. [Suspect]
     Active Substance: MINOXIDIL
     Indication: ALOPECIA
     Dosage: LESS THAN 1 ML, BID
     Route: 061
     Dates: start: 201611, end: 20170213

REACTIONS (6)
  - Application site scab [Recovering/Resolving]
  - Application site pruritus [Recovering/Resolving]
  - Drug administered at inappropriate site [Recovered/Resolved]
  - Application site irritation [Recovering/Resolving]
  - Application site pain [Recovering/Resolving]
  - Incorrect dose administered [Recovered/Resolved]

NARRATIVE: CASE EVENT DATE: 201602
